FAERS Safety Report 7296374-7 (Version None)
Quarter: 2011Q1

REPORT INFORMATION
  Report Type: 
  Country: None (occurrence: None)
  Receive Date: 20110211
  Receipt Date: 20110211
  Transmission Date: 20110831
  Serious: Yes (Other)
  Sender: FDA-Public Use
  Company Number: None

PATIENT
  Age: 42 Year
  Sex: Female

DRUGS (2)
  1. LEVOTHYROXINE SODIUM [Suspect]
  2. LEVOXYL [Suspect]

REACTIONS (3)
  - DRUG DISPENSING ERROR [None]
  - REACTION TO DRUG EXCIPIENTS [None]
  - DRUG PRESCRIBING ERROR [None]
